FAERS Safety Report 7382589-6 (Version None)
Quarter: 2011Q1

REPORT INFORMATION
  Report Type: 
  Country: None (occurrence: None)
  Receive Date: 20110329
  Receipt Date: 20110315
  Transmission Date: 20110831
  Serious: Yes (Hospitalization)
  Sender: FDA-Public Use
  Company Number: US-BAYER-2011-001192

PATIENT
  Sex: Female

DRUGS (1)
  1. BETASERON [Suspect]
     Indication: PRODUCT USED FOR UNKNOWN INDICATION
     Dosage: UNK
     Route: 058
     Dates: start: 19940101, end: 20020101

REACTIONS (1)
  - INJECTION SITE CELLULITIS [None]
